FAERS Safety Report 7511766-6 (Version None)
Quarter: 2011Q2

REPORT INFORMATION
  Report Type: 
  Country: None (occurrence: None)
  Receive Date: 20110531
  Receipt Date: 20110519
  Transmission Date: 20111010
  Serious: Yes (Other)
  Sender: FDA-Public Use
  Company Number: US-JNJFOC-20110509858

PATIENT
  Age: 53 Year
  Sex: Male

DRUGS (2)
  1. SUDAFED 24 HOUR [Suspect]
  2. SUDAFED 24 HOUR [Suspect]
     Indication: SINUS DISORDER

REACTIONS (1)
  - CONVULSION [None]
